FAERS Safety Report 20045330 (Version 3)
Quarter: 2022Q2

REPORT INFORMATION
  Report Type: Spontaneous
  Country: US (occurrence: US)
  Receive Date: 20211108
  Receipt Date: 20220516
  Transmission Date: 20220720
  Serious: Yes (Other)
  Sender: FDA-Public Use
  Company Number: US-GILEAD-2021-0555303

PATIENT
  Age: 44 Year
  Sex: Male
  Weight: 70.295 kg

DRUGS (21)
  1. TRUVADA [Suspect]
     Active Substance: EMTRICITABINE\TENOFOVIR DISOPROXIL FUMARATE
     Indication: Prophylaxis against HIV infection
     Dosage: UNK
     Route: 048
     Dates: start: 2014, end: 2019
  2. DESCOVY [Concomitant]
     Active Substance: EMTRICITABINE\TENOFOVIR ALAFENAMIDE FUMARATE
  3. ABILIFY [Concomitant]
     Active Substance: ARIPIPRAZOLE
  4. FAMOTIDINE [Concomitant]
     Active Substance: FAMOTIDINE
  5. VIAGRA [Concomitant]
     Active Substance: SILDENAFIL CITRATE
  6. AMBIEN [Concomitant]
     Active Substance: ZOLPIDEM TARTRATE
  7. BUPROPION [Concomitant]
     Active Substance: BUPROPION
  8. DIAZEPAM [Concomitant]
     Active Substance: DIAZEPAM
  9. DESOXYN [Concomitant]
     Active Substance: METHAMPHETAMINE HYDROCHLORIDE
  10. XARELTO [Concomitant]
     Active Substance: RIVAROXABAN
  11. BENZTROPINE MESYLATE [Concomitant]
     Active Substance: BENZTROPINE MESYLATE
  12. CLINDAMYCIN [Concomitant]
     Active Substance: CLINDAMYCIN
  13. AMOXICILLIN [Concomitant]
     Active Substance: AMOXICILLIN
  14. ZYPREXA [Concomitant]
     Active Substance: OLANZAPINE
  15. LEVOFLOXACIN [Concomitant]
     Active Substance: LEVOFLOXACIN
  16. TORADOL [Concomitant]
     Active Substance: KETOROLAC TROMETHAMINE
  17. VANCOMYCIN [Concomitant]
     Active Substance: VANCOMYCIN
  18. CRESTOR [Concomitant]
     Active Substance: ROSUVASTATIN CALCIUM
  19. AMITRIPTYLINE [Concomitant]
     Active Substance: AMITRIPTYLINE
  20. LOPERAMIDE [Concomitant]
     Active Substance: LOPERAMIDE
  21. LOVAZA [Concomitant]
     Active Substance: OMEGA-3-ACID ETHYL ESTERS

REACTIONS (9)
  - Chronic kidney disease [Not Recovered/Not Resolved]
  - Blood creatinine increased [Unknown]
  - Pain [Not Recovered/Not Resolved]
  - Emotional distress [Not Recovered/Not Resolved]
  - Anxiety [Not Recovered/Not Resolved]
  - Anhedonia [Not Recovered/Not Resolved]
  - Urinary tract disorder [Unknown]
  - Insomnia [Not Recovered/Not Resolved]
  - Toxicity to various agents [Unknown]

NARRATIVE: CASE EVENT DATE: 20170601
